FAERS Safety Report 7338966-2 (Version None)
Quarter: 2011Q1

REPORT INFORMATION
  Report Type: 
  Country: None (occurrence: None)
  Receive Date: 20110308
  Receipt Date: 20110223
  Transmission Date: 20110831
  Serious: Yes (Life-Threatening, Hospitalization)
  Sender: FDA-Public Use
  Company Number: FR-ELI_LILLY_AND_COMPANY-FR201102006674

PATIENT
  Age: 37 Year
  Sex: Female

DRUGS (4)
  1. TRIMEPRAZINE TARTRATE [Concomitant]
     Dosage: 30 ML, UNK
     Dates: start: 20090108
  2. ZOPICLONE [Concomitant]
     Dosage: 420 MG, UNK
     Route: 048
     Dates: start: 20090108
  3. CYMBALTA [Suspect]
     Dosage: 1500 MG, UNK
     Route: 048
     Dates: start: 20090108, end: 20090108
  4. ABILIFY [Concomitant]
     Dosage: 260 MG, UNK
     Route: 048
     Dates: start: 20090108

REACTIONS (4)
  - RHABDOMYOLYSIS [None]
  - COMA [None]
  - INTENTIONAL OVERDOSE [None]
  - RENAL FAILURE ACUTE [None]
